FAERS Safety Report 9698140 (Version 2)
Quarter: 2014Q3

REPORT INFORMATION
  Report Type: Spontaneous
  Country: US (occurrence: US)
  Receive Date: 20131120
  Receipt Date: 20140822
  Transmission Date: 20150326
  Serious: Yes (Life-Threatening, Hospitalization)
  Sender: FDA-Public Use
  Company Number: US-BAYER-2013-139808

PATIENT
  Age: 23 Year
  Sex: Female
  Weight: 68.27 kg

DRUGS (1)
  1. MIRENA [Suspect]
     Active Substance: LEVONORGESTREL
     Indication: CONTRACEPTION
     Dosage: 20 MCG/24HR, CONT
     Route: 015
     Dates: start: 200711, end: 201207

REACTIONS (9)
  - Injury [None]
  - Anhedonia [None]
  - Device issue [None]
  - General physical health deterioration [None]
  - Anxiety [None]
  - Pelvic inflammatory disease [None]
  - Premature baby [None]
  - Emotional distress [None]
  - Abdominal pain lower [None]

NARRATIVE: CASE EVENT DATE: 2008
